FAERS Safety Report 19420825 (Version 2)
Quarter: 2021Q2

REPORT INFORMATION
  Report Type: Spontaneous
  Country: EG (occurrence: EG)
  Receive Date: 20210616
  Receipt Date: 20210624
  Transmission Date: 20210717
  Serious: Yes (Life-Threatening)
  Sender: FDA-Public Use
  Company Number: EG-NOVOPROD-820003

PATIENT
  Age: 214 Month
  Sex: Female
  Weight: 65 kg

DRUGS (2)
  1. INSULATARD NPH HUMAN [Suspect]
     Active Substance: INSULIN HUMAN
     Indication: PRODUCT USED FOR UNKNOWN INDICATION
     Dosage: UNK
     Route: 065
     Dates: start: 2010, end: 2013
  2. ACTRAPID [Suspect]
     Active Substance: INSULIN HUMAN
     Indication: PRODUCT USED FOR UNKNOWN INDICATION
     Dosage: UNK
     Route: 065
     Dates: start: 2010, end: 2013

REACTIONS (1)
  - Optic atrophy [Unknown]

NARRATIVE: CASE EVENT DATE: 2012
